FAERS Safety Report 23760190 (Version 7)
Quarter: 2025Q1

REPORT INFORMATION
  Report Type: Report from Study
  Country: US (occurrence: US)
  Receive Date: 20240419
  Receipt Date: 20250327
  Transmission Date: 20250409
  Serious: Yes (Other)
  Sender: TAKEDA
  Company Number: US-TAKEDA-2023TUS063755

PATIENT
  Sex: Female
  Weight: 81 kg

DRUGS (43)
  1. HUMAN IMMUNOGLOBULIN G [Suspect]
     Active Substance: HUMAN IMMUNOGLOBULIN G
     Indication: Immunodeficiency common variable
     Dosage: 24 GRAM, Q2WEEKS
     Dates: start: 20230612
  2. HUMAN IMMUNOGLOBULIN G [Suspect]
     Active Substance: HUMAN IMMUNOGLOBULIN G
     Indication: Immunodeficiency
     Dosage: 24 GRAM, Q2WEEKS
     Dates: start: 20230613
  3. HUMAN IMMUNOGLOBULIN G [Suspect]
     Active Substance: HUMAN IMMUNOGLOBULIN G
     Dosage: 24 GRAM, Q2WEEKS
  4. REZDIFFRA [Suspect]
     Active Substance: RESMETIROM
     Indication: Product used for unknown indication
  5. EPINEPHRINE [Concomitant]
     Active Substance: EPINEPHRINE
  6. ACETAMINOPHEN [Concomitant]
     Active Substance: ACETAMINOPHEN
  7. OMEGA-3-ACID ETHYL ESTERS [Concomitant]
     Active Substance: OMEGA-3-ACID ETHYL ESTERS
  8. METFORMIN HYDROCHLORIDE [Concomitant]
     Active Substance: METFORMIN HYDROCHLORIDE
  9. VITAMIN C [Concomitant]
     Active Substance: ASCORBIC ACID
  10. MELATONIN [Concomitant]
     Active Substance: MELATONIN
  11. ESTRADIOL [Concomitant]
     Active Substance: ESTRADIOL
     Dosage: UNK UNK, 2/WEEK
  12. ROSUVASTATIN CALCIUM [Concomitant]
     Active Substance: ROSUVASTATIN CALCIUM
  13. PREDNISONE [Concomitant]
     Active Substance: PREDNISONE
  14. FIORICET [Concomitant]
     Active Substance: ACETAMINOPHEN\BUTALBITAL\CAFFEINE
  15. ACETAMINOPHEN\HYDROCODONE [Concomitant]
     Active Substance: ACETAMINOPHEN\HYDROCODONE
  16. WELLBUTRIN XL [Concomitant]
     Active Substance: BUPROPION HYDROCHLORIDE
  17. BISOPROLOL FUMARATE [Concomitant]
     Active Substance: BISOPROLOL FUMARATE
  18. LYRICA [Concomitant]
     Active Substance: PREGABALIN
  19. VITAMIN D3 [Concomitant]
     Active Substance: CHOLECALCIFEROL
  20. VITAMIN E [Concomitant]
     Active Substance: .ALPHA.-TOCOPHEROL
  21. MAGNESIUM [Concomitant]
     Active Substance: MAGNESIUM
  22. YUVAFEM [Concomitant]
     Active Substance: ESTRADIOL HEMIHYDRATE
  23. ONDANSETRON [Concomitant]
     Active Substance: ONDANSETRON
  24. HYDROCODONE BITARTRATE AND ACETAMINOPHEN [Concomitant]
     Active Substance: ACETAMINOPHEN\HYDROCODONE BITARTRATE
  25. ROSUVASTATIN [Concomitant]
     Active Substance: ROSUVASTATIN
  26. LIDOCAINE [Concomitant]
     Active Substance: LIDOCAINE
  27. ARMODAFINIL [Concomitant]
     Active Substance: ARMODAFINIL
  28. FAMOTIDINE [Concomitant]
     Active Substance: FAMOTIDINE
  29. OZEMPIC [Concomitant]
     Active Substance: SEMAGLUTIDE
  30. CLARINEX [Concomitant]
     Active Substance: DESLORATADINE
  31. ZOLPIDEM [Concomitant]
     Active Substance: ZOLPIDEM TARTRATE
  32. NURTEC ODT [Concomitant]
     Active Substance: RIMEGEPANT SULFATE
  33. DIPHENHYDRAMINE HYDROCHLORIDE [Concomitant]
     Active Substance: DIPHENHYDRAMINE HYDROCHLORIDE
  34. 3,3^-DIINDOLYLMETHANE [Concomitant]
     Active Substance: 3,3^-DIINDOLYLMETHANE
  35. METAXALONE [Concomitant]
     Active Substance: METAXALONE
  36. ASPIRIN [Concomitant]
     Active Substance: ASPIRIN
  37. ONDANSETRON HYDROCHLORIDE [Concomitant]
     Active Substance: ONDANSETRON HYDROCHLORIDE
  38. PROGESTERONE [Concomitant]
     Active Substance: PROGESTERONE
  39. BOTOX [Concomitant]
     Active Substance: ONABOTULINUMTOXINA
  40. OMEGA 3 [Concomitant]
     Active Substance: CAPSAICIN
  41. METFORMIN [Concomitant]
     Active Substance: METFORMIN HYDROCHLORIDE
  42. ZOLPIDEM TARTRATE [Concomitant]
     Active Substance: ZOLPIDEM TARTRATE
  43. FENOFIBRATE [Concomitant]
     Active Substance: FENOFIBRATE

REACTIONS (25)
  - Pneumonia [Unknown]
  - Urinary tract infection fungal [Unknown]
  - Gastrointestinal disorder [Unknown]
  - Eyelid infection [Unknown]
  - Skin infection [Unknown]
  - Postoperative wound infection [Unknown]
  - Product dose omission issue [Unknown]
  - Candida infection [Unknown]
  - Hepatic enzyme increased [Recovered/Resolved]
  - Dry mouth [Unknown]
  - Liver function test increased [Recovered/Resolved]
  - Urinary tract infection [Unknown]
  - Fungal infection [Unknown]
  - Sinusitis [Unknown]
  - Infusion site haemorrhage [Unknown]
  - Infusion site urticaria [Recovered/Resolved]
  - Infusion site discomfort [Unknown]
  - Rash [Unknown]
  - Infusion site erythema [Recovered/Resolved]
  - Infusion site swelling [Recovered/Resolved]
  - Migraine [Unknown]
  - Infusion site pain [Unknown]
  - Fatigue [Unknown]
  - Nausea [Recovered/Resolved]
  - Dizziness [Recovered/Resolved]
